FAERS Safety Report 5214291-0 (Version None)
Quarter: 2007Q1

REPORT INFORMATION
  Report Type: 
  Country: None (occurrence: None)
  Receive Date: 20070122
  Receipt Date: 20070108
  Transmission Date: 20070707
  Serious: Yes (Hospitalization)
  Sender: FDA-Public Use
  Company Number: FR-JNJFOC-20070102825

PATIENT
  Age: 91 Year
  Sex: Male

DRUGS (8)
  1. ACETAMINOPHEN AND TRAMADOL HCL [Suspect]
     Indication: BACK PAIN
     Route: 048
  2. ACETAMINOPHEN W/ PROPOXYPHENE HCL [Concomitant]
     Indication: BACK PAIN
     Route: 048
  3. PREVISCAN [Concomitant]
     Indication: PROPHYLAXIS
     Route: 048
  4. CORDARONE [Concomitant]
     Route: 065
  5. LASIX [Concomitant]
     Route: 065
  6. SYMBICORT [Concomitant]
     Route: 055
  7. NITRODERM [Concomitant]
     Route: 062
  8. TRIATEC [Concomitant]
     Route: 048

REACTIONS (1)
  - ILEUS [None]
